FAERS Safety Report 15113979 (Version 1)
Quarter: 2018Q3

REPORT INFORMATION
  Report Type: Spontaneous
  Country: CA (occurrence: CA)
  Receive Date: 20180706
  Receipt Date: 20180706
  Transmission Date: 20181010
  Serious: Yes (Life-Threatening, Hospitalization)
  Sender: FDA-Public Use
  Company Number: CA-ROCHE-2146539

PATIENT
  Age: 60 Year
  Sex: Female
  Weight: 85 kg

DRUGS (11)
  1. ACETAMINOPHEN. [Concomitant]
     Active Substance: ACETAMINOPHEN
  2. HYDROMORPHONE [Concomitant]
     Active Substance: HYDROMORPHONE
  3. LORAZEPAM. [Concomitant]
     Active Substance: LORAZEPAM
  4. VENLAFAXINE XR [Concomitant]
     Active Substance: VENLAFAXINE HYDROCHLORIDE
     Route: 065
  5. CEPHALEXIN. [Concomitant]
     Active Substance: CEPHALEXIN
     Indication: PRODUCT USED FOR UNKNOWN INDICATION
     Route: 065
  6. ZELBORAF [Suspect]
     Active Substance: VEMURAFENIB
     Indication: METASTATIC MALIGNANT MELANOMA
     Route: 048
  7. ESOMEPRAZOLE [Concomitant]
     Active Substance: ESOMEPRAZOLE
  8. LEVOTHYROXINE. [Concomitant]
     Active Substance: LEVOTHYROXINE
  9. SENNA [Concomitant]
     Active Substance: SENNA LEAF\SENNOSIDES\SENNOSIDES A AND B
  10. COTELLIC [Suspect]
     Active Substance: COBIMETINIB
     Indication: METASTATIC MALIGNANT MELANOMA
     Route: 048
  11. XARELTO [Concomitant]
     Active Substance: RIVAROXABAN
     Route: 065

REACTIONS (23)
  - Dehydration [Recovering/Resolving]
  - Skin exfoliation [Recovering/Resolving]
  - Inflammation [Recovering/Resolving]
  - Blister rupture [Recovering/Resolving]
  - Solar dermatitis [Recovering/Resolving]
  - Generalised erythema [Recovering/Resolving]
  - Malaise [Recovering/Resolving]
  - Pemphigoid [Recovering/Resolving]
  - Contusion [Recovering/Resolving]
  - Hypotension [Recovering/Resolving]
  - Dermatitis allergic [Recovering/Resolving]
  - Rash generalised [Recovering/Resolving]
  - Stevens-Johnson syndrome [Recovering/Resolving]
  - Urticaria [Recovering/Resolving]
  - Blister [Recovering/Resolving]
  - Blood creatinine abnormal [Recovering/Resolving]
  - Oropharyngeal pain [Recovering/Resolving]
  - Intensive care [Recovering/Resolving]
  - Laryngeal oedema [Recovering/Resolving]
  - Oral pain [Recovering/Resolving]
  - Pyrexia [Recovering/Resolving]
  - Rhabdomyolysis [Recovering/Resolving]
  - Toxic epidermal necrolysis [Recovering/Resolving]
